FAERS Safety Report 21879980 (Version 1)
Quarter: 2023Q1

REPORT INFORMATION
  Report Type: Spontaneous
  Country: CN (occurrence: None)
  Receive Date: 20230118
  Receipt Date: 20230118
  Transmission Date: 20230418
  Serious: Yes (Other)
  Sender: FDA-Public Use
  Company Number: 2023A007787

PATIENT
  Age: 70 Year
  Sex: Male

DRUGS (4)
  1. GEFITINIB [Suspect]
     Active Substance: GEFITINIB
     Indication: Lung adenocarcinoma stage IV
     Route: 048
  2. OSIMERTINIB [Suspect]
     Active Substance: OSIMERTINIB
     Indication: Lung adenocarcinoma stage IV
     Route: 048
  3. PEMETREXED [Concomitant]
     Active Substance: PEMETREXED
     Dosage: THIRD-LINE THERAPY FOR 2 CYCLES
  4. CARBOPLATIN [Concomitant]
     Active Substance: CARBOPLATIN
     Dosage: THIRD-LINE THERAPY FOR 2 CYCLES

REACTIONS (4)
  - Malignant neoplasm progression [Unknown]
  - Metastases to bone [Unknown]
  - Acquired gene mutation [Unknown]
  - ROS1 gene rearrangement [Unknown]
